FAERS Safety Report 11965726 (Version 1)
Quarter: 2016Q1

REPORT INFORMATION
  Report Type: Spontaneous
  Country: US (occurrence: None)
  Receive Date: 20160126
  Receipt Date: 20160126
  Transmission Date: 20160526
  Serious: No
  Sender: FDA-Public Use
  Company Number: None

PATIENT
  Age: 66 Year
  Sex: Male
  Weight: 61.24 kg

DRUGS (8)
  1. CLONAZIPAM QUALITEST [Suspect]
     Active Substance: CLONAZEPAM
     Indication: ANXIETY
     Dosage: .05MG 1 PILL ONCE AT BEDTIME MOUTH
     Route: 048
     Dates: start: 20160105, end: 20160120
  2. VITAMIN D3 [Concomitant]
     Active Substance: CHOLECALCIFEROL
  3. CLONAZIPAM QUALITEST [Suspect]
     Active Substance: CLONAZEPAM
     Indication: DEPRESSION
     Dosage: .05MG 1 PILL ONCE AT BEDTIME MOUTH
     Route: 048
     Dates: start: 20160105, end: 20160120
  4. LAMOTRIGINE. [Concomitant]
     Active Substance: LAMOTRIGINE
  5. VITAMIN C [Concomitant]
     Active Substance: ASCORBIC ACID
  6. FINESTERIDE [Concomitant]
     Active Substance: FINASTERIDE
  7. PRISTIQ EXTENDED-RELEASE [Concomitant]
     Active Substance: DESVENLAFAXINE SUCCINATE
  8. KLONOPIN [Concomitant]
     Active Substance: CLONAZEPAM

REACTIONS (5)
  - Product quality issue [None]
  - Chest pain [None]
  - Product formulation issue [None]
  - Product substitution issue [None]
  - Dyspepsia [None]

NARRATIVE: CASE EVENT DATE: 20160101
